FAERS Safety Report 10095024 (Version 1)
Quarter: 2014Q2

REPORT INFORMATION
  Report Type: Spontaneous
  Country: US (occurrence: US)
  Receive Date: 20140422
  Receipt Date: 20140422
  Transmission Date: 20141212
  Serious: No
  Sender: FDA-Public Use
  Company Number: US-009507513-1403USA011970

PATIENT
  Age: 87 Year
  Sex: Female

DRUGS (6)
  1. AMLODIPINE [Concomitant]
  2. HYDROCHLOROTHIAZIDE [Concomitant]
  3. ATENOLOL [Concomitant]
  4. PLAVIX [Concomitant]
  5. VITAMINS (UNSPECIFIED) [Concomitant]
  6. LOSARTAN POTASSIUM [Suspect]
     Indication: HYPERTENSION
     Route: 048

REACTIONS (1)
  - Pruritus generalised [Not Recovered/Not Resolved]
